FAERS Safety Report 4965477-1 (Version None)
Quarter: 2006Q2

REPORT INFORMATION
  Report Type: 
  Country: None (occurrence: None)
  Receive Date: 20060406
  Receipt Date: 20050928
  Transmission Date: 20061013
  Serious: Yes (Death, Hospitalization, Other)
  Sender: FDA-Public Use
  Company Number: US-MERCK-0509USA04938

PATIENT
  Age: 64 Year
  Sex: Male
  Weight: 123 kg

DRUGS (11)
  1. COMBIVENT [Concomitant]
     Route: 065
  2. LASIX [Concomitant]
     Route: 065
  3. ISOSORBIDE [Concomitant]
     Route: 065
  4. LANOXIN [Concomitant]
     Route: 065
  5. LISINOPRIL [Concomitant]
     Route: 065
  6. PROTONIX [Concomitant]
     Route: 065
  7. AVANDIA [Concomitant]
     Route: 065
  8. FLOMAX [Concomitant]
     Route: 065
  9. VIOXX [Suspect]
     Indication: ARTHRITIS
     Route: 048
     Dates: start: 19990101, end: 20040101
  10. ALLEGRA [Concomitant]
     Route: 065
  11. PREDNISONE [Concomitant]
     Route: 065

REACTIONS (12)
  - CARDIAC DISORDER [None]
  - CARDIAC FAILURE CONGESTIVE [None]
  - CARPAL TUNNEL SYNDROME [None]
  - CEREBROVASCULAR ACCIDENT [None]
  - CORONARY ARTERY DISEASE [None]
  - DEMENTIA ALZHEIMER'S TYPE [None]
  - EMPHYSEMA [None]
  - HYPERTENSIVE HEART DISEASE [None]
  - LUNG DISORDER [None]
  - PERIPHERAL VASCULAR DISORDER [None]
  - RENAL DISORDER [None]
  - URINARY TRACT DISORDER [None]
